FAERS Safety Report 16930680 (Version 1)
Quarter: 2019Q4

REPORT INFORMATION
  Report Type: Spontaneous
  Country: US (occurrence: US)
  Receive Date: 20191017
  Receipt Date: 20191017
  Transmission Date: 20200122
  Serious: Yes (Hospitalization)
  Sender: FDA-Public Use
  Company Number: US-JUBILANT CADISTA PHARMACEUTICALS-2018JUB00515

PATIENT
  Age: 69 Year
  Sex: Male
  Weight: 127.7 kg

DRUGS (5)
  1. PREDNISONE. [Suspect]
     Active Substance: PREDNISONE
     Indication: ACUTE GRAFT VERSUS HOST DISEASE
     Dosage: 20 MG EVERY OTHER DAY (ALTERNATING WITH 15 MG)
     Route: 048
     Dates: start: 20180917
  2. INCB039110 (ITACITINIB) OR PLACEBO [Suspect]
     Active Substance: ITACITINIB
     Indication: ACUTE GRAFT VERSUS HOST DISEASE
     Dosage: 200 MG, 2X/DAY
     Route: 048
     Dates: start: 20180919
  3. METOLAZONE. [Concomitant]
     Active Substance: METOLAZONE
     Dosage: UNK
     Dates: start: 20181017
  4. PREDNISONE. [Suspect]
     Active Substance: PREDNISONE
     Dosage: 15 MG EVERY OTHER DAY (ALTERNATING WITH 20 MG)
     Route: 048
     Dates: start: 20180918
  5. FUROSEMIDE. [Concomitant]
     Active Substance: FUROSEMIDE
     Dosage: UNK
     Dates: start: 20181008

REACTIONS (1)
  - Oedema [Not Recovered/Not Resolved]

NARRATIVE: CASE EVENT DATE: 20181106
